FAERS Safety Report 13593806 (Version 2)
Quarter: 2017Q2

REPORT INFORMATION
  Report Type: Spontaneous
  Country: US (occurrence: US)
  Receive Date: 20170530
  Receipt Date: 20170531
  Transmission Date: 20170830
  Serious: Yes (Hospitalization, Other)
  Sender: FDA-Public Use
  Company Number: US-SA-2017SA092286

PATIENT
  Age: 61 Year
  Sex: Male

DRUGS (4)
  1. NOVOLOG [Concomitant]
     Active Substance: INSULIN ASPART
  2. SOLOSTAR [Concomitant]
     Active Substance: DEVICE
  3. BRILINTA [Concomitant]
     Active Substance: TICAGRELOR
  4. LANTUS SOLOSTAR [Suspect]
     Active Substance: INSULIN GLARGINE
     Indication: TYPE 2 DIABETES MELLITUS
     Dosage: DOSE:66 UNIT(S)
     Route: 058
     Dates: start: 20050101

REACTIONS (8)
  - Fatigue [Unknown]
  - Cardiac tamponade [Unknown]
  - Blood glucose increased [Unknown]
  - Dyspnoea [Unknown]
  - Arrhythmia [Unknown]
  - Fluid retention [Unknown]
  - Incision site infection [Unknown]
  - Myocardial infarction [Recovering/Resolving]

NARRATIVE: CASE EVENT DATE: 20170323
